FAERS Safety Report 16893027 (Version 2)
Quarter: 2019Q4

REPORT INFORMATION
  Report Type: Report from Study
  Country: None (occurrence: US)
  Receive Date: 20191008
  Receipt Date: 20191126
  Transmission Date: 20200122
  Serious: Yes (Other)
  Sender: FDA-Public Use
  Company Number: US-ABBVIE-19K-163-2725821-00

PATIENT
  Age: 57 Year
  Sex: Female

DRUGS (2)
  1. HUMIRA [Suspect]
     Active Substance: ADALIMUMAB
     Indication: PSORIATIC ARTHROPATHY
     Dosage: CITRATE FREE
     Route: 058
     Dates: end: 2019
  2. HUMIRA [Suspect]
     Active Substance: ADALIMUMAB
     Dosage: CITRATE FREE
     Route: 058

REACTIONS (15)
  - Muscle spasms [Unknown]
  - Device loosening [Unknown]
  - Spinal fusion surgery [Unknown]
  - Surgical failure [Unknown]
  - Hand deformity [Unknown]
  - Peripheral nerve injury [Unknown]
  - Memory impairment [Unknown]
  - Insomnia [Unknown]
  - Pyrexia [Unknown]
  - Dyspnoea [Unknown]
  - Osteoarthritis [Unknown]
  - Musculoskeletal disorder [Unknown]
  - Back pain [Unknown]
  - Gait disturbance [Unknown]
  - Migraine [Unknown]

NARRATIVE: CASE EVENT DATE: 20190515
